FAERS Safety Report 13928080 (Version 1)
Quarter: 2017Q3

REPORT INFORMATION
  Report Type: Report from Study
  Country: DE (occurrence: DE)
  Receive Date: 20170901
  Receipt Date: 20170901
  Transmission Date: 20171127
  Serious: Yes (Other)
  Sender: FDA-Public Use
  Company Number: DE-ROCHE-1986011

PATIENT

DRUGS (3)
  1. SORAFENIB [Suspect]
     Active Substance: SORAFENIB
     Indication: COLORECTAL CANCER
     Route: 065
  2. CAPECITABINE. [Suspect]
     Active Substance: CAPECITABINE
     Indication: COLORECTAL CANCER
     Dosage: D1-D14
     Route: 065
  3. SORAFENIB [Suspect]
     Active Substance: SORAFENIB
     Route: 065

REACTIONS (13)
  - Vomiting [Unknown]
  - Mucosal inflammation [Unknown]
  - Fatigue [Unknown]
  - Anaemia [Unknown]
  - Weight decreased [Unknown]
  - Infection [Unknown]
  - Pain [Unknown]
  - Thrombocytopenia [Unknown]
  - Diarrhoea [Unknown]
  - Palmar-plantar erythrodysaesthesia syndrome [Unknown]
  - Leukopenia [Unknown]
  - Rash [Unknown]
  - Nausea [Unknown]
